FAERS Safety Report 12838869 (Version 1)
Quarter: 2016Q4

REPORT INFORMATION
  Report Type: Spontaneous
  Country: US (occurrence: US)
  Receive Date: 20161010
  Receipt Date: 20161010
  Transmission Date: 20170207
  Serious: Yes (Death)
  Sender: FDA-Public Use
  Company Number: None

PATIENT
  Age: 27 Year
  Sex: Female
  Weight: 63 kg

DRUGS (1)
  1. MAKENA [Suspect]
     Active Substance: HYDROXYPROGESTERONE CAPROATE
     Indication: PREMATURE BABY
     Dosage: ?          QUANTITY:1 INJECTION(S);OTHER FREQUENCY:ONCE A WEEK SHOT;?
     Route: 030
     Dates: start: 20150701, end: 20160121

REACTIONS (3)
  - Stillbirth [None]
  - Foetal heart rate abnormal [None]
  - Foetal placental thrombosis [None]

NARRATIVE: CASE EVENT DATE: 20160121
